FAERS Safety Report 18171729 (Version 3)
Quarter: 2020Q4

REPORT INFORMATION
  Report Type: Spontaneous
  Country: US (occurrence: US)
  Receive Date: 20200820
  Receipt Date: 20201111
  Transmission Date: 20210113
  Serious: No
  Sender: FDA-Public Use
  Company Number: US-SA-2020SA209253

PATIENT

DRUGS (2)
  1. LANTUS SOLOSTAR [Suspect]
     Active Substance: INSULIN GLARGINE
     Dosage: 8 IU, QD
     Route: 065
  2. LANTUS SOLOSTAR [Suspect]
     Active Substance: INSULIN GLARGINE
     Indication: DIABETES MELLITUS
     Dosage: 15 IU, QD
     Route: 065

REACTIONS (5)
  - Incorrect dose administered by device [Unknown]
  - Device operational issue [Unknown]
  - Blood glucose increased [Unknown]
  - Product dose omission issue [Unknown]
  - Wrong technique in device usage process [Unknown]
